FAERS Safety Report 11258192 (Version 3)
Quarter: 2015Q4

REPORT INFORMATION
  Report Type: Spontaneous
  Country: US (occurrence: None)
  Receive Date: 20150708
  Receipt Date: 20151103
  Transmission Date: 20160304
  Serious: Yes (Disabling, Other)
  Sender: FDA-Public Use
  Company Number: RAP-001056-2015

PATIENT
  Age: 36 Year
  Sex: Male
  Weight: 63.5 kg

DRUGS (13)
  1. PROCYSBI DELAYED-RELEASE [Suspect]
     Active Substance: CYSTEAMINE BITARTRATE
     Indication: CYSTINOSIS
     Route: 048
     Dates: start: 201311
  2. SULFAMETHOXAZOLE/TRIMETHOPRIME [Concomitant]
  3. LEVOTHYROXINE. [Concomitant]
     Active Substance: LEVOTHYROXINE
  4. PROGRAF [Concomitant]
     Active Substance: TACROLIMUS\TACROLIMUS ANHYDROUS
  5. ERGOCALCIFEROL. [Concomitant]
     Active Substance: ERGOCALCIFEROL
  6. NEXIUM [Concomitant]
     Active Substance: ESOMEPRAZOLE MAGNESIUM
  7. CITALOPRAM [Concomitant]
     Active Substance: CITALOPRAM HYDROBROMIDE
  8. PREDNISONE (PREDNISONE) [Concomitant]
     Active Substance: PREDNISONE
  9. CYSTAGON (CYSTEAMINE) EYE DROPS [Concomitant]
  10. LIPITOR [Concomitant]
     Active Substance: ATORVASTATIN CALCIUM
  11. CELLCEPT [Concomitant]
     Active Substance: MYCOPHENOLATE MOFETIL\MYCOPHENOLATE MOFETIL HYDROCHLORIDE
  12. ASPIRIN. [Concomitant]
     Active Substance: ASPIRIN
  13. GLYBURIDE. [Concomitant]
     Active Substance: GLYBURIDE

REACTIONS (8)
  - Metabolic acidosis [None]
  - Proteinuria [None]
  - Renal impairment [None]
  - Anaemia [None]
  - Hyperphosphataemia [None]
  - Abdominal pain upper [None]
  - Malaise [None]
  - Condition aggravated [None]

NARRATIVE: CASE EVENT DATE: 20150315
